FAERS Safety Report 4278206-4 (Version None)
Quarter: 2004Q1

REPORT INFORMATION
  Report Type: 
  Country: None (occurrence: None)
  Receive Date: 20040123
  Receipt Date: 20031224
  Transmission Date: 20041129
  Serious: Yes (Other)
  Sender: FDA-Public Use
  Company Number: FR-BRISTOL-MYERS SQUIBB COMPANY-12467825

PATIENT
  Age: 52 Year
  Sex: Male
  Weight: 89 kg

DRUGS (5)
  1. ENDOXAN [Suspect]
     Indication: CARCINOMA
     Dosage: ALSO RECEIVED THERAPY FROM JANUARY 2003 TO 01-MAR-2003 800MG/MONTH
     Route: 042
     Dates: start: 20031222, end: 20031222
  2. DOXORUBICIN HCL [Concomitant]
     Route: 042
     Dates: start: 20031222, end: 20031222
  3. ONDANSETRON HCL [Concomitant]
     Indication: PREMEDICATION
     Route: 042
  4. SOLU-MEDROL [Concomitant]
     Indication: PREMEDICATION
     Route: 042
  5. OXYCONTIN [Concomitant]

REACTIONS (5)
  - DYSGEUSIA [None]
  - HYPERSENSITIVITY [None]
  - VERTIGO [None]
  - VISION BLURRED [None]
  - VISUAL ACUITY REDUCED [None]
